FAERS Safety Report 7062369-1 (Version None)
Quarter: 2010Q4

REPORT INFORMATION
  Report Type: 
  Country: None (occurrence: None)
  Receive Date: 20101026
  Receipt Date: 20101014
  Transmission Date: 20110411
  Serious: Yes (Hospitalization)
  Sender: FDA-Public Use
  Company Number: PHHY2010EG68673

PATIENT
  Age: 45 Year
  Sex: Male

DRUGS (2)
  1. MIACALCIN [Suspect]
     Indication: OSTEOPOROSIS
     Dosage: UNK
     Route: 045
  2. CORTICOSTEROIDS [Concomitant]
     Dosage: UNK

REACTIONS (1)
  - HEMIPARESIS [None]
